FAERS Safety Report 17473676 (Version 1)
Quarter: 2020Q1

REPORT INFORMATION
  Report Type: Spontaneous
  Country: US (occurrence: US)
  Receive Date: 20200218
  Receipt Date: 20200218
  Transmission Date: 20200409
  Serious: Yes (Hospitalization)
  Sender: FDA-Public Use
  Company Number: None

PATIENT
  Age: 59 Year
  Sex: Female

DRUGS (9)
  1. IBUPROFEN. [Concomitant]
     Active Substance: IBUPROFEN
  2. LETROZOLE 2.5MG TAB [Suspect]
     Active Substance: LETROZOLE
     Indication: BREAST CANCER FEMALE
     Dosage: ?          OTHER DOSE:1 TAB;?
     Route: 048
     Dates: start: 20181213
  3. CARVEDILOL. [Concomitant]
     Active Substance: CARVEDILOL
  4. IBRANCE [Concomitant]
     Active Substance: PALBOCICLIB
  5. LISINOPRIL. [Concomitant]
     Active Substance: LISINOPRIL
  6. ROSUVASTATIN. [Concomitant]
     Active Substance: ROSUVASTATIN
  7. POT CHLORIDE [Concomitant]
     Active Substance: POTASSIUM CHLORIDE
  8. SPIRONOLACT [Concomitant]
     Active Substance: SPIRONOLACTONE
  9. XGEVA [Concomitant]
     Active Substance: DENOSUMAB

REACTIONS (2)
  - Hospitalisation [None]
  - Therapy cessation [None]

NARRATIVE: CASE EVENT DATE: 20200217
